FAERS Safety Report 8483174-5 (Version None)
Quarter: 2012Q3

REPORT INFORMATION
  Report Type: 
  Country: None (occurrence: None)
  Receive Date: 20120702
  Receipt Date: 20120625
  Transmission Date: 20120928
  Serious: Yes (Other)
  Sender: FDA-Public Use
  Company Number: JP-PFIZER INC-2012152370

PATIENT

DRUGS (2)
  1. CORTRIL [Suspect]
     Dosage: UNK
     Route: 048
  2. HYDROCORTISONE SODIUM SUCCINATE [Concomitant]
     Route: 042

REACTIONS (2)
  - PNEUMONIA [None]
  - SHOCK [None]
